FAERS Safety Report 10770783 (Version 3)
Quarter: 2015Q3

REPORT INFORMATION
  Report Type: Report from Study
  Country: CA (occurrence: CA)
  Receive Date: 20150206
  Receipt Date: 20150710
  Transmission Date: 20151125
  Serious: Yes (Other)
  Sender: FDA-Public Use
  Company Number: CA-AMGEN-CANSL2015009240

PATIENT
  Age: 68 Year
  Sex: Female

DRUGS (5)
  1. PROLIA [Suspect]
     Active Substance: DENOSUMAB
     Indication: OSTEOPOROSIS POSTMENOPAUSAL
     Dosage: 60 MG, Q6MO
     Route: 058
     Dates: start: 20140805
  2. OXYCODONE [Concomitant]
     Active Substance: OXYCODONE
     Indication: MIGRAINE
     Dosage: UNK UNK, AS NECESSARY
  3. PREMARIN [Concomitant]
     Active Substance: ESTROGENS, CONJUGATED
  4. TYLENOL [Concomitant]
     Active Substance: ACETAMINOPHEN
  5. VITAMIN D                          /00107901/ [Concomitant]
     Active Substance: ERGOCALCIFEROL
     Dosage: UNK

REACTIONS (8)
  - Bone pain [Unknown]
  - Malaise [Unknown]
  - Paraesthesia [Recovered/Resolved]
  - Joint range of motion decreased [Unknown]
  - Musculoskeletal pain [Not Recovered/Not Resolved]
  - Grip strength decreased [Unknown]
  - Lung neoplasm malignant [Unknown]
  - Asthenia [Unknown]

NARRATIVE: CASE EVENT DATE: 201501
